FAERS Safety Report 18843629 (Version 1)
Quarter: 2021Q1

REPORT INFORMATION
  Report Type: Report from Study
  Country: US (occurrence: US)
  Receive Date: 20210203
  Receipt Date: 20210203
  Transmission Date: 20210419
  Serious: No
  Sender: FDA-Public Use
  Company Number: US-EXELIXIS-CABO-20026517

PATIENT
  Sex: Male

DRUGS (3)
  1. CABOMETYX [Suspect]
     Active Substance: CABOZANTINIB S-MALATE
     Indication: MALIGNANT RESPIRATORY TRACT NEOPLASM
     Dosage: 20 MG
     Dates: start: 20191205
  2. CABOMETYX [Suspect]
     Active Substance: CABOZANTINIB S-MALATE
     Dosage: 60 MG (W/O FOOD)
     Dates: start: 20191218
  3. CABOMETYX [Suspect]
     Active Substance: CABOZANTINIB S-MALATE
     Dosage: 40 MG(W/O) FOOD
     Dates: start: 20200108

REACTIONS (8)
  - Taste disorder [Recovered/Resolved]
  - Pain in extremity [Recovering/Resolving]
  - Dysphagia [Recovering/Resolving]
  - Dry mouth [Recovering/Resolving]
  - Nausea [Recovered/Resolved]
  - Blood pressure increased [Unknown]
  - Skin exfoliation [Recovering/Resolving]
  - Off label use [Unknown]
